FAERS Safety Report 7152321-X (Version None)
Quarter: 2010Q4

REPORT INFORMATION
  Report Type: 
  Country: None (occurrence: None)
  Receive Date: 20101213
  Receipt Date: 20101129
  Transmission Date: 20110411
  Serious: Yes (Hospitalization)
  Sender: FDA-Public Use
  Company Number: DE-CELGENEUS-062-21880-10113243

PATIENT
  Age: 68 Year
  Sex: Female
  Weight: 68 kg

DRUGS (4)
  1. REVLIMID [Suspect]
     Route: 048
     Dates: start: 20100905
  2. AZACITIDINE [Suspect]
     Route: 051
     Dates: start: 20100831
  3. VALTREX [Concomitant]
     Indication: PROPHYLAXIS
     Route: 048
     Dates: start: 20100801
  4. CIPRO [Concomitant]
     Indication: PROPHYLAXIS
     Route: 048
     Dates: start: 20100801

REACTIONS (4)
  - BLOOD LACTATE DEHYDROGENASE INCREASED [None]
  - HAEMOGLOBIN DECREASED [None]
  - PLATELET COUNT DECREASED [None]
  - SINUSITIS [None]
